FAERS Safety Report 20814023 (Version 2)
Quarter: 2022Q2

REPORT INFORMATION
  Report Type: Spontaneous
  Country: CN (occurrence: CN)
  Receive Date: 20220511
  Receipt Date: 20220512
  Transmission Date: 20220721
  Serious: Yes (Hospitalization, Other)
  Sender: FDA-Public Use
  Company Number: CN-009507513-2205CHN002183

PATIENT
  Age: 76 Year
  Sex: Female
  Weight: 65 kg

DRUGS (6)
  1. KEYTRUDA [Suspect]
     Active Substance: PEMBROLIZUMAB
     Indication: Lung neoplasm malignant
     Dosage: 200 MG, ONCE, DAY 1 (D1)
     Route: 041
     Dates: start: 20210823, end: 20210823
  2. KEYTRUDA [Suspect]
     Active Substance: PEMBROLIZUMAB
     Dosage: 200 MG, ONCE, D1
     Dates: start: 20210914, end: 20210914
  3. PEMETREXED DISODIUM [Suspect]
     Active Substance: PEMETREXED DISODIUM
     Indication: Lung neoplasm malignant
     Dosage: 0.8 G, ONCE, DAY 1 (D1)
     Route: 041
     Dates: start: 20210823, end: 20210823
  4. PEMETREXED DISODIUM [Suspect]
     Active Substance: PEMETREXED DISODIUM
     Dosage: 0.8 G, ONCE, DAY 1 (D1)
     Route: 041
     Dates: start: 20210914, end: 20210914
  5. CARBOPLATIN [Suspect]
     Active Substance: CARBOPLATIN
     Indication: Lung neoplasm malignant
     Dosage: 50 MG, ONCE, DAY 1 (D1)
     Route: 041
     Dates: start: 20210823, end: 20210823
  6. CARBOPLATIN [Suspect]
     Active Substance: CARBOPLATIN
     Dosage: 50 MG, ONCE, DAY 1 (D1)
     Route: 041
     Dates: start: 20210914, end: 20210914

REACTIONS (7)
  - Interstitial lung disease [Recovering/Resolving]
  - Respiratory failure [Recovering/Resolving]
  - Gastrointestinal disorder [Recovered/Resolved]
  - Oedema [Recovering/Resolving]
  - Pleural effusion [Unknown]
  - Atelectasis [Unknown]
  - Product use issue [Unknown]

NARRATIVE: CASE EVENT DATE: 20210101
